FAERS Safety Report 5536929-0 (Version None)
Quarter: 2007Q4

REPORT INFORMATION
  Report Type: 
  Country: None (occurrence: None)
  Receive Date: 20071207
  Receipt Date: 20071203
  Transmission Date: 20080405
  Serious: Yes (Life-Threatening)
  Sender: FDA-Public Use
  Company Number: PHEH2007US12206

PATIENT
  Sex: Female

DRUGS (3)
  1. DIOVAN HCT [Suspect]
     Indication: HYPERTENSION
  2. NITROGLYCERIN [Concomitant]
     Indication: ANGINA UNSTABLE
     Dosage: UNK, QD
     Route: 048
  3. NITROGLYCERIN [Concomitant]
     Dosage: UNK, PRN
     Route: 060

REACTIONS (3)
  - ANGINA UNSTABLE [None]
  - ANGIOGRAM [None]
  - SURGERY [None]
